FAERS Safety Report 23172099 (Version 2)
Quarter: 2023Q4

REPORT INFORMATION
  Report Type: Report from Study
  Country: US (occurrence: US)
  Receive Date: 20231110
  Receipt Date: 20231214
  Transmission Date: 20240109
  Serious: Yes (Hospitalization)
  Sender: FDA-Public Use
  Company Number: US-ARGENX-2023-ARGX-US003854

PATIENT

DRUGS (1)
  1. VYVGART [Suspect]
     Active Substance: EFGARTIGIMOD ALFA-FCAB
     Indication: Myasthenia gravis
     Dosage: 10 MG/KG, 1/WEEK
     Route: 042
     Dates: start: 20230601

REACTIONS (11)
  - Myasthenia gravis crisis [Recovered/Resolved]
  - Myasthenia gravis crisis [Recovered/Resolved]
  - Back pain [Unknown]
  - Cough [Recovered/Resolved]
  - Illness [Recovered/Resolved]
  - Migraine [Unknown]
  - Influenza [Unknown]
  - Infusion related reaction [Unknown]
  - Pollakiuria [Unknown]
  - Micturition urgency [Unknown]
  - Unevaluable event [Not Recovered/Not Resolved]

NARRATIVE: CASE EVENT DATE: 20230619
